FAERS Safety Report 19633891 (Version 1)
Quarter: 2021Q3

REPORT INFORMATION
  Report Type: Spontaneous
  Country: FR (occurrence: FR)
  Receive Date: 20210730
  Receipt Date: 20210730
  Transmission Date: 20211014
  Serious: Yes (Other)
  Sender: FDA-Public Use
  Company Number: FR-SUN PHARMACEUTICAL INDUSTRIES LTD-2021RR-306141

PATIENT
  Age: 47 Year
  Sex: Male

DRUGS (4)
  1. METFORMIN [Suspect]
     Active Substance: METFORMIN HYDROCHLORIDE
     Indication: METABOLIC DISORDER
     Dosage: UNK
     Route: 065
  2. ABACAVIR. [Suspect]
     Active Substance: ABACAVIR
     Indication: METABOLIC DISORDER
     Dosage: UNK
     Route: 065
     Dates: start: 200612
  3. DIDANOSINE. [Suspect]
     Active Substance: DIDANOSINE
     Indication: METABOLIC DISORDER
     Dosage: UNK
     Route: 065
     Dates: start: 200612
  4. LOPINAVIR/RITONAVIR [Suspect]
     Active Substance: LOPINAVIR\RITONAVIR
     Indication: METABOLIC DISORDER
     Dosage: UNK
     Route: 065

REACTIONS (2)
  - Tendonitis [Unknown]
  - Hyperlactacidaemia [Unknown]
